FAERS Safety Report 12393244 (Version 1)
Quarter: 2016Q2

REPORT INFORMATION
  Report Type: Spontaneous
  Country: US (occurrence: None)
  Receive Date: 20160520
  Receipt Date: 20160520
  Transmission Date: 20160815
  Serious: No
  Sender: FDA-Public Use
  Company Number: None

PATIENT
  Sex: Female

DRUGS (1)
  1. PROLIA [Suspect]
     Active Substance: DENOSUMAB
     Indication: OSTEOPOROSIS
     Dosage: 60MG EVERY 6 MONTHS SQ
     Route: 058
     Dates: start: 20150422, end: 20151111

REACTIONS (4)
  - Bone disorder [None]
  - Weight increased [None]
  - Cardiac disorder [None]
  - Muscle disorder [None]
